FAERS Safety Report 23251187 (Version 5)
Quarter: 2024Q1

REPORT INFORMATION
  Report Type: Spontaneous
  Country: US (occurrence: US)
  Receive Date: 20231201
  Receipt Date: 20240220
  Transmission Date: 20240410
  Serious: No
  Sender: FDA-Public Use
  Company Number: US-PFIZER INC-202300397065

PATIENT
  Age: 8 Year
  Sex: Female

DRUGS (1)
  1. GENOTROPIN [Suspect]
     Active Substance: SOMATROPIN
     Indication: Growth hormone deficiency
     Dosage: 1MG, (ONE TIME, AT BED TIME)
     Dates: start: 20231120

REACTIONS (3)
  - Poor quality device used [Unknown]
  - Device breakage [Unknown]
  - Device leakage [Unknown]
